FAERS Safety Report 6914406-X (Version None)
Quarter: 2010Q3

REPORT INFORMATION
  Report Type: 
  Country: None (occurrence: None)
  Receive Date: 20100805
  Receipt Date: 20100805
  Transmission Date: 20110219
  Serious: Yes (Life-Threatening, Hospitalization, Other)
  Sender: FDA-Public Use
  Company Number: None

PATIENT
  Age: 30 Year
  Sex: Female
  Weight: 70.3075 kg

DRUGS (1)
  1. YAZ [Suspect]
     Indication: MENSTRUAL CYCLE MANAGEMENT
     Dosage: 3 MG/ .02MG PER DAY PO
     Route: 048
     Dates: start: 20070430, end: 20070712

REACTIONS (6)
  - CHOLECYSTECTOMY [None]
  - GALLBLADDER DISORDER [None]
  - MALAISE [None]
  - NAUSEA [None]
  - PAIN [None]
  - PULMONARY EMBOLISM [None]
